FAERS Safety Report 5646834-7 (Version None)
Quarter: 2008Q1

REPORT INFORMATION
  Report Type: 
  Country: None (occurrence: None)
  Receive Date: 20080228
  Receipt Date: 20080218
  Transmission Date: 20080703
  Serious: Yes (Hospitalization)
  Sender: FDA-Public Use
  Company Number: GXKR2008DE01884

PATIENT
  Age: 68 Year
  Sex: Male

DRUGS (5)
  1. METOPROLOL SUCCINATE [Suspect]
     Indication: HYPERTENSION
     Dosage: ORAL
     Route: 048
     Dates: start: 20060104, end: 20070501
  2. DICLOFENAC (DICLOFENAC) [Concomitant]
  3. METHYLPREDNISOLONE [Concomitant]
  4. ESOMEPRAZOLE (ESOMEPRAZOLE) [Concomitant]
  5. CALCIMAGON (CALCIUM CARBONATE_ [Concomitant]

REACTIONS (11)
  - CARDIOVASCULAR DISORDER [None]
  - CONVULSION [None]
  - DIPLOPIA [None]
  - DIZZINESS [None]
  - DYSPNOEA [None]
  - FATIGUE [None]
  - FIBROMYALGIA [None]
  - HYPERHIDROSIS [None]
  - PAIN IN EXTREMITY [None]
  - PAIN OF SKIN [None]
  - WEIGHT INCREASED [None]
